FAERS Safety Report 9983120 (Version 1)
Quarter: 2014Q1

REPORT INFORMATION
  Report Type: Report from Study
  Country: US (occurrence: US)
  Receive Date: 20140307
  Receipt Date: 20140307
  Transmission Date: 20141002
  Serious: No
  Sender: FDA-Public Use
  Company Number: US-ABBVIE-13P-163-1179742-00

PATIENT
  Age: 25 Year
  Sex: Female

DRUGS (9)
  1. HUMIRA [Suspect]
     Indication: CROHN^S DISEASE
     Dates: start: 20131102, end: 20131102
  2. HUMIRA [Suspect]
     Dates: start: 201311
  3. SEASONIQUE [Concomitant]
     Indication: CONTRACEPTION
  4. TOPAMAX [Concomitant]
     Indication: MIGRAINE
     Dosage: DECREASING DOASAGE AND TRYING TO GET OFF IT.  WAS 50 MG NOW 25 MG
  5. CELEXA [Concomitant]
     Indication: ANXIETY
  6. CELEXA [Concomitant]
     Indication: DEPRESSION
  7. PROMETHAZINE [Concomitant]
     Indication: NAUSEA
  8. HYDROCODONE [Concomitant]
     Indication: PAIN
     Dosage: 10/325 MG
  9. ZOFRAN [Concomitant]
     Indication: NAUSEA

REACTIONS (4)
  - Oral herpes [Not Recovered/Not Resolved]
  - Injection site pain [Recovered/Resolved]
  - Injection site haemorrhage [Recovered/Resolved]
  - Lip swelling [Not Recovered/Not Resolved]
